FAERS Safety Report 23343817 (Version 1)
Quarter: 2023Q4

REPORT INFORMATION
  Report Type: Spontaneous
  Country: GR (occurrence: GR)
  Receive Date: 20231227
  Receipt Date: 20231227
  Transmission Date: 20240110
  Serious: Yes (Other)
  Sender: FDA-Public Use
  Company Number: GR-UCBSA-2023057251

PATIENT
  Age: 12 Year
  Sex: Female

DRUGS (2)
  1. LEVETIRACETAM [Suspect]
     Active Substance: LEVETIRACETAM
     Indication: Epilepsy
     Dosage: 30 MILLIGRAM/KILOGRAM
     Route: 065
  2. BRIVARACETAM [Suspect]
     Active Substance: BRIVARACETAM
     Indication: Seizure
     Dosage: UNK, 8ML X 2 (4MG/KG)
     Route: 065

REACTIONS (9)
  - Partial seizures [Unknown]
  - Syncope [Unknown]
  - Self esteem decreased [Unknown]
  - Sleep disorder [Unknown]
  - Oppositional defiant disorder [Unknown]
  - Anger [Unknown]
  - Panic attack [Unknown]
  - Anxiety [Unknown]
  - Off label use [Unknown]
